FAERS Safety Report 24749931 (Version 1)
Quarter: 2024Q4

REPORT INFORMATION
  Report Type: Spontaneous
  Country: US (occurrence: US)
  Receive Date: 20241218
  Receipt Date: 20241218
  Transmission Date: 20250115
  Serious: No
  Sender: SANOFI AVENTIS
  Company Number: US-SA-2024SA373431

PATIENT
  Age: 66 Year
  Sex: Female

DRUGS (3)
  1. APIDRA [Suspect]
     Active Substance: INSULIN GLULISINE
     Indication: Hypothyroidism
     Dosage: 100 U, QD
     Route: 058
  2. APIDRA [Suspect]
     Active Substance: INSULIN GLULISINE
     Indication: Goitre
  3. APIDRA [Suspect]
     Active Substance: INSULIN GLULISINE
     Indication: Hyperlipidaemia

REACTIONS (1)
  - Off label use [Unknown]
